FAERS Safety Report 4888328-2 (Version None)
Quarter: 2006Q1

REPORT INFORMATION
  Report Type: 
  Country: None (occurrence: None)
  Receive Date: 20060123
  Receipt Date: 20060116
  Transmission Date: 20060701
  Serious: Yes (Hospitalization)
  Sender: FDA-Public Use
  Company Number: CN-GLAXOSMITHKLINE-B0406871A

PATIENT
  Age: 8 Year
  Sex: Male

DRUGS (1)
  1. ZENTEL [Suspect]
     Indication: DRUG USE FOR UNKNOWN INDICATION
     Dosage: 400MG SINGLE DOSE
     Route: 065
     Dates: start: 20060102, end: 20060102

REACTIONS (1)
  - HAEMATURIA [None]
